FAERS Safety Report 22614429 (Version 1)
Quarter: 2023Q2

REPORT INFORMATION
  Report Type: Spontaneous
  Country: CN (occurrence: CN)
  Receive Date: 20230619
  Receipt Date: 20230619
  Transmission Date: 20230722
  Serious: Yes (Hospitalization)
  Sender: FDA-Public Use
  Company Number: CN-STRIDES ARCOLAB LIMITED-2023SP007331

PATIENT
  Age: 35 Year
  Sex: Female

DRUGS (6)
  1. METRONIDAZOLE [Interacting]
     Active Substance: METRONIDAZOLE
     Indication: Infection
     Dosage: UNK (PAST HISTORY)
     Route: 065
  2. METRONIDAZOLE [Interacting]
     Active Substance: METRONIDAZOLE
     Dosage: 0.75 GRAM PER DAY, FORMULATION: SUSTAINED RELEASE TABLET
     Route: 048
     Dates: start: 20191101
  3. IBUPROFEN [Interacting]
     Active Substance: IBUPROFEN
     Indication: Pyrexia
     Dosage: UNK (PAST HISTORY) (UNKNOWN FORMULATION)
     Route: 065
  4. IBUPROFEN [Interacting]
     Active Substance: IBUPROFEN
     Indication: Upper respiratory tract infection
     Dosage: 0.2 GRAM, RECEIVED FOUR TIMES (FORMULATION: GRANULES)
     Route: 048
     Dates: start: 20191103
  5. CEFUROXIME AXETIL [Concomitant]
     Active Substance: CEFUROXIME AXETIL
     Indication: Infection
     Dosage: UNK (PAST HISTORY)
     Route: 065
  6. CEFUROXIME AXETIL [Concomitant]
     Active Substance: CEFUROXIME AXETIL
     Dosage: 0.25 GRAM, BID
     Route: 048
     Dates: start: 20191101

REACTIONS (2)
  - Drug-induced liver injury [Recovered/Resolved]
  - Drug interaction [Unknown]

NARRATIVE: CASE EVENT DATE: 20191104
